FAERS Safety Report 25741521 (Version 1)
Quarter: 2025Q3

REPORT INFORMATION
  Report Type: Spontaneous
  Country: CA (occurrence: CA)
  Receive Date: 20250829
  Receipt Date: 20250829
  Transmission Date: 20251021
  Serious: Yes (Hospitalization)
  Sender: ORGANON
  Company Number: CA-ORGANON-O2508CAN001902

PATIENT
  Age: 62 Year
  Sex: Female
  Weight: 68 kg

DRUGS (14)
  1. REMERON [Suspect]
     Active Substance: MIRTAZAPINE
     Indication: Depression
     Dosage: 15 MILLIGRAM, 1 EVERY 1 DAYS
     Route: 048
  2. REMERON [Suspect]
     Active Substance: MIRTAZAPINE
     Indication: Anxiety
  3. ESCITALOPRAM [Suspect]
     Active Substance: ESCITALOPRAM OXALATE
     Indication: Depression
     Dosage: UNK, 1 EVERY 1 DAYS
     Route: 048
  4. ESCITALOPRAM [Suspect]
     Active Substance: ESCITALOPRAM OXALATE
     Indication: Anxiety
  5. AMOXICILLIN TRIHYDRATE [Suspect]
     Active Substance: AMOXICILLIN
     Indication: Dental operation
     Dosage: 500 MILLIGRAM, 2 EVERY 1 DAYS
     Route: 048
  6. ATORVASTATIN [Concomitant]
     Active Substance: ATORVASTATIN
     Route: 065
  7. CLONAZEPAM [Concomitant]
     Active Substance: CLONAZEPAM
     Route: 065
  8. GLICLAZIDE [Concomitant]
     Active Substance: GLICLAZIDE
     Route: 065
  9. HYDROMORPHONE [Concomitant]
     Active Substance: HYDROMORPHONE
     Route: 065
  10. JARDIANCE [Concomitant]
     Active Substance: EMPAGLIFLOZIN
     Route: 065
  11. NABILONE [Concomitant]
     Active Substance: NABILONE
     Route: 065
  12. OZEMPIC [Concomitant]
     Active Substance: SEMAGLUTIDE
     Route: 065
  13. PREGABALIN [Concomitant]
     Active Substance: PREGABALIN
     Route: 065
  14. SYNTHROID [Concomitant]
     Active Substance: LEVOTHYROXINE SODIUM
     Route: 065

REACTIONS (12)
  - Agitation [Recovered/Resolved]
  - Anal incontinence [Recovered/Resolved]
  - Blood pressure increased [Recovered/Resolved]
  - Confusional state [Recovered/Resolved]
  - Electrocardiogram QT prolonged [Recovered/Resolved]
  - Eyelid haematoma [Recovered/Resolved]
  - Eyelid injury [Recovered/Resolved]
  - Fall [Recovered/Resolved]
  - Malaise [Recovered/Resolved]
  - Serotonin syndrome [Recovered/Resolved]
  - Tremor [Recovered/Resolved]
  - Vomiting [Recovered/Resolved]
